FAERS Safety Report 11188998 (Version 4)
Quarter: 2015Q3

REPORT INFORMATION
  Report Type: Report from Study
  Country: CZ (occurrence: CZ)
  Receive Date: 20150615
  Receipt Date: 20150831
  Transmission Date: 20151125
  Serious: Yes (Death, Hospitalization)
  Sender: FDA-Public Use
  Company Number: CZ-JNJFOC-20150604757

PATIENT
  Age: 73 Year
  Sex: Female
  Weight: 67 kg

DRUGS (1)
  1. USTEKINUMAB [Suspect]
     Active Substance: USTEKINUMAB
     Indication: PSORIASIS
     Route: 058
     Dates: start: 201110, end: 2015

REACTIONS (7)
  - Pulmonary embolism [Fatal]
  - Sepsis [Fatal]
  - Gangrene [Fatal]
  - Ischaemic stroke [Fatal]
  - Embolism venous [Fatal]
  - Pneumonia [Fatal]
  - Peripheral ischaemia [Fatal]

NARRATIVE: CASE EVENT DATE: 20150501
